FAERS Safety Report 5792789-4 (Version None)
Quarter: 2008Q2

REPORT INFORMATION
  Report Type: 
  Country: None (occurrence: None)
  Receive Date: 20080627
  Receipt Date: 20080303
  Transmission Date: 20081010
  Serious: No
  Sender: FDA-Public Use
  Company Number: US-BAYER-200816349NA

PATIENT
  Age: 28 Year
  Sex: Female
  Weight: 111 kg

DRUGS (3)
  1. MIRENA [Suspect]
     Indication: CONTRACEPTION
     Route: 015
     Dates: start: 20070101
  2. LEVOTHYROXINE SODIUM [Concomitant]
     Indication: HYPOTHYROIDISM
     Route: 048
  3. PROZAC [Concomitant]
     Indication: PREMENSTRUAL SYNDROME
     Route: 048

REACTIONS (2)
  - ALOPECIA [None]
  - GENITAL HAEMORRHAGE [None]
